FAERS Safety Report 8694335 (Version 3)
Quarter: 2012Q4

REPORT INFORMATION
  Report Type: 
  Country: PT (occurrence: PT)
  Receive Date: 20120731
  Receipt Date: 20121016
  Transmission Date: 20130627
  Serious: Yes (Death, Hospitalization, Other)
  Sender: FDA-Public Use
  Company Number: PT-PFIZER INC-2012175846

PATIENT
  Age: 62 Year
  Sex: Male
  Weight: 70 kg

DRUGS (4)
  1. CELECOXIB [Suspect]
     Indication: INFLAMMATION
     Dosage: 200 mg, 1x/day (as needed)
     Route: 048
     Dates: start: 20120515, end: 20120530
  2. BACTRIM FORTE [Suspect]
     Indication: INFECTION PROPHYLAXIS
     Dosage: 2 DF (800mg + 160mg), 1x/day
     Route: 048
     Dates: start: 20120515, end: 20120530
  3. PRADAXA [Suspect]
     Indication: THROMBOSIS PROPHYLAXIS
     Dosage: 150 mg (2 capsules of 75mg), 1x/day
     Route: 048
     Dates: start: 20120515, end: 20120530
  4. FLUDEX - SLOW RELEASE [Concomitant]
     Indication: HYPERTENSION
     Dosage: 1.5 mg, 1x/day
     Route: 048

REACTIONS (10)
  - Death [Fatal]
  - Stevens-Johnson syndrome [Not Recovered/Not Resolved]
  - Toxic epidermal necrolysis [Not Recovered/Not Resolved]
  - Rash erythematous [Not Recovered/Not Resolved]
  - Odynophagia [Not Recovered/Not Resolved]
  - Face oedema [Not Recovered/Not Resolved]
  - Pruritus [Not Recovered/Not Resolved]
  - Pyrexia [Not Recovered/Not Resolved]
  - Ocular discomfort [Not Recovered/Not Resolved]
  - Chills [Not Recovered/Not Resolved]
